FAERS Safety Report 17400974 (Version 1)
Quarter: 2020Q1

REPORT INFORMATION
  Report Type: Spontaneous
  Country: US (occurrence: US)
  Receive Date: 20200211
  Receipt Date: 20200211
  Transmission Date: 20200409
  Serious: Yes (Hospitalization)
  Sender: FDA-Public Use
  Company Number: US-VISTAPHARM, INC.-VER202002-000262

PATIENT
  Age: 28 Year
  Sex: Female
  Weight: 94 kg

DRUGS (8)
  1. HYDROMORPHONE [Suspect]
     Active Substance: HYDROMORPHONE
     Dosage: EQUIVALENT TO UP TO 192 MME/DAY
  2. OXYCODONE [Suspect]
     Active Substance: OXYCODONE
     Indication: PAIN
     Dosage: EQUIVALENT TO 90 MME/DAY
  3. KETAMINE [Concomitant]
     Active Substance: KETAMINE
     Indication: PAIN
     Dosage: 1 MCG/KG/MIN
  4. HYDROMORPHONE [Suspect]
     Active Substance: HYDROMORPHONE
     Dosage: 304 MME/DAY
  5. NAPROXEN. [Concomitant]
     Active Substance: NAPROXEN
     Indication: PRODUCT USED FOR UNKNOWN INDICATION
  6. KETAMINE [Concomitant]
     Active Substance: KETAMINE
     Dosage: 3 MCG/KG/MIN
  7. OXYCODONE [Suspect]
     Active Substance: OXYCODONE
     Dosage: DISCHARGED ON OXYCODONE EQUIVALENT TO 180 MEE/DAY
  8. HYDROMORPHONE [Suspect]
     Active Substance: HYDROMORPHONE
     Indication: PAIN
     Dosage: EQUIVALENT TO UP TO 192 MME/DAY

REACTIONS (2)
  - Oxygen saturation decreased [Not Recovered/Not Resolved]
  - Drug ineffective [Unknown]
